FAERS Safety Report 8974213 (Version 2)
Quarter: 2013Q3

REPORT INFORMATION
  Report Type: Spontaneous
  Country: CA (occurrence: None)
  Receive Date: 20121213
  Receipt Date: 20130730
  Transmission Date: 20140515
  Serious: Yes (Hospitalization, Disabling)
  Sender: FDA-Public Use
  Company Number: 1511375

PATIENT
  Age: 42 Year
  Sex: Female
  Weight: 72.2 kg

DRUGS (7)
  1. CARBOPLATIN [Suspect]
     Indication: HER-2 POSITIVE BREAST CANCER
     Dosage: 840 MG MILLIGRAMS, 1 WEEK, INTRAVENOUS (NOT OTHERWISE SPECIFIED)?
     Route: 042
     Dates: start: 20090318, end: 20090723
  2. BEVACIZUMAB [Suspect]
     Indication: HER-2 POSITIVE BREAST CANCER
     Route: 042
     Dates: start: 20090318, end: 20090723
  3. DOCETAXEL [Suspect]
     Indication: HER-2 POSITIVE BREAST CANCER
     Dosage: 129 MG MILLIGRAMS, 1 WEEK, INTRAVENOUS (NOT OTHERWISE SPECIFIED)?
     Route: 042
     Dates: start: 20090318, end: 20090723
  4. TRASTUZUMAB [Concomitant]
  5. AMLODIPINE BESILATE [Concomitant]
  6. HYDROCHLOROTHIAZIDE [Concomitant]
  7. PANTOPRAZOLE SODIUM [Concomitant]

REACTIONS (6)
  - Encephalopathy [None]
  - Febrile neutropenia [None]
  - Diarrhoea [None]
  - Renal failure acute [None]
  - Blood lactic acid increased [None]
  - Septic shock [None]
